FAERS Safety Report 6533543-5 (Version None)
Quarter: 2010Q1

REPORT INFORMATION
  Report Type: 
  Country: None (occurrence: None)
  Receive Date: 20100108
  Receipt Date: 20100108
  Transmission Date: 20100710
  Serious: Yes (Other)
  Sender: FDA-Public Use
  Company Number: None

PATIENT
  Sex: Female

DRUGS (1)
  1. VENLAFAXINE HYDROCHLORIDE [Suspect]
     Indication: DEPRESSION
     Dosage: 5 TO 6 DAILY PO 3 WKS STILL TAKING
     Route: 048

REACTIONS (3)
  - DRUG INEFFECTIVE [None]
  - LETHARGY [None]
  - PRODUCT SUBSTITUTION ISSUE [None]
